FAERS Safety Report 5414507-1 (Version None)
Quarter: 2007Q3

REPORT INFORMATION
  Report Type: 
  Country: None (occurrence: None)
  Receive Date: 20070713
  Receipt Date: 20070206
  Transmission Date: 20080115
  Serious: Yes (Hospitalization)
  Sender: FDA-Public Use
  Company Number: US-JNJFOC-20070106775

PATIENT
  Age: 31 Year
  Sex: Female
  Weight: 117.9352 kg

DRUGS (1)
  1. ORTHO EVRA [Suspect]
     Indication: CONTRACEPTION
     Dosage: 1 CI, 3 IN 4 WEEK, TRANSDERMAL
     Route: 062
     Dates: start: 20050201, end: 20050201

REACTIONS (1)
  - PULMONARY EMBOLISM [None]
